FAERS Safety Report 5987984-5 (Version None)
Quarter: 2008Q4

REPORT INFORMATION
  Report Type: 
  Country: None (occurrence: None)
  Receive Date: 20081210
  Receipt Date: 20080415
  Transmission Date: 20090506
  Serious: No
  Sender: FDA-Public Use
  Company Number: US-AMGEN-KDL273957

PATIENT
  Sex: Female

DRUGS (7)
  1. ENBREL [Suspect]
     Indication: PSORIASIS
     Route: 058
     Dates: start: 20070726
  2. BETAMETHASONE [Concomitant]
  3. ACTONEL [Concomitant]
  4. GAVISCON [Concomitant]
  5. ADVIL LIQUI-GELS [Concomitant]
  6. CALCIUM [Concomitant]
  7. GLUCOSAMINE [Concomitant]

REACTIONS (2)
  - NASOPHARYNGITIS [None]
  - SINUSITIS [None]
